FAERS Safety Report 12712644 (Version 2)
Quarter: 2016Q3

REPORT INFORMATION
  Report Type: Spontaneous
  Country: US (occurrence: US)
  Receive Date: 20160902
  Receipt Date: 20160907
  Transmission Date: 20161109
  Serious: Yes (Hospitalization, Other)
  Sender: FDA-Public Use
  Company Number: US-ALLERGAN-1667260US

PATIENT
  Age: 81 Year
  Sex: Male

DRUGS (1)
  1. LUMIGAN [Suspect]
     Active Substance: BIMATOPROST
     Indication: INTRAOCULAR PRESSURE INCREASED
     Dosage: UNK, QHS
     Route: 047
     Dates: start: 2014

REACTIONS (4)
  - Eye haemorrhage [Unknown]
  - Visual acuity reduced [Unknown]
  - Vision blurred [Not Recovered/Not Resolved]
  - Road traffic accident [Unknown]
